FAERS Safety Report 4533159-6 (Version None)
Quarter: 2004Q4

REPORT INFORMATION
  Report Type: 
  Country: None (occurrence: None)
  Receive Date: 20041210
  Receipt Date: 20040910
  Transmission Date: 20050328
  Serious: Yes (Death)
  Sender: FDA-Public Use
  Company Number: 2004-00511

PATIENT
  Age: 84 Year
  Sex: Female
  Weight: 48.1 kg

DRUGS (5)
  1. VELCADE [Suspect]
     Indication: MANTLE CELL LYMPHOMA
     Dosage: INTRAVENOUS
     Route: 042
     Dates: start: 20040301
  2. DIGOXIN [Concomitant]
  3. ZOCOR [Concomitant]
  4. COUMADIN [Concomitant]
  5. ALLOPURINOL [Concomitant]

REACTIONS (1)
  - DISEASE PROGRESSION [None]
